FAERS Safety Report 21188318 (Version 2)
Quarter: 2022Q4

REPORT INFORMATION
  Report Type: Spontaneous
  Country: US (occurrence: US)
  Receive Date: 20220809
  Receipt Date: 20221005
  Transmission Date: 20230112
  Serious: No
  Sender: FDA-Public Use
  Company Number: US-JNJFOC-20220807461

PATIENT
  Age: 68 Year
  Sex: Male

DRUGS (1)
  1. OPSUMIT [Suspect]
     Active Substance: MACITENTAN
     Indication: Product used for unknown indication
     Route: 048
     Dates: start: 20220607

REACTIONS (4)
  - Anxiety [Unknown]
  - COVID-19 [Not Recovered/Not Resolved]
  - Dyspnoea [Unknown]
  - Hyperventilation [Unknown]

NARRATIVE: CASE EVENT DATE: 20220812
